FAERS Safety Report 13762293 (Version 1)
Quarter: 2017Q3

REPORT INFORMATION
  Report Type: Spontaneous
  Country: US (occurrence: US)
  Receive Date: 20170717
  Receipt Date: 20170717
  Transmission Date: 20171127
  Serious: Yes (Hospitalization)
  Sender: FDA-Public Use
  Company Number: None

PATIENT
  Age: 77 Year
  Sex: Female

DRUGS (24)
  1. METOPROLOL. [Concomitant]
     Active Substance: METOPROLOL
  2. QUETIAPINE. [Concomitant]
     Active Substance: QUETIAPINE
  3. MIRTAZAPINE. [Concomitant]
     Active Substance: MIRTAZAPINE
  4. ROPINIROLE. [Concomitant]
     Active Substance: ROPINIROLE
  5. CARB/LEVO [Concomitant]
     Active Substance: CARBIDOPA\LEVODOPA
  6. ONDANSETRON [Concomitant]
     Active Substance: ONDANSETRON
  7. TRAZODONE [Concomitant]
     Active Substance: TRAZODONE HYDROCHLORIDE
  8. NUPLAZID [Suspect]
     Active Substance: PIMAVANSERIN TARTRATE
     Indication: PARKINSON^S DISEASE
     Route: 048
     Dates: start: 201610
  9. CITALOPRAM [Concomitant]
     Active Substance: CITALOPRAM HYDROBROMIDE
  10. LEVOFLOXACIN. [Concomitant]
     Active Substance: LEVOFLOXACIN
  11. AMANTADINE. [Concomitant]
     Active Substance: AMANTADINE HYDROCHLORIDE
  12. SEROQUEL [Concomitant]
     Active Substance: QUETIAPINE FUMARATE
  13. AMANDATINE [Concomitant]
  14. NITROFURANTN [Concomitant]
     Active Substance: NITROFURANTOIN
  15. VITAMIN D [Concomitant]
     Active Substance: CHOLECALCIFEROL
  16. CITALOPRAM [Concomitant]
     Active Substance: CITALOPRAM HYDROBROMIDE
  17. OMEPRAZOLE. [Concomitant]
     Active Substance: OMEPRAZOLE
  18. LORAZEPAM. [Concomitant]
     Active Substance: LORAZEPAM
  19. CYANOCOBALAM [Concomitant]
  20. SINEMET [Concomitant]
     Active Substance: CARBIDOPA\LEVODOPA
  21. FAMOTIDINE. [Concomitant]
     Active Substance: FAMOTIDINE
  22. DONEPEZIL. [Concomitant]
     Active Substance: DONEPEZIL
  23. PANTOPRAZOLE [Concomitant]
     Active Substance: PANTOPRAZOLE
  24. RIVASTIGMINE DIS [Concomitant]

REACTIONS (1)
  - Psychotic disorder [None]

NARRATIVE: CASE EVENT DATE: 20170703
